FAERS Safety Report 6958641-3 (Version None)
Quarter: 2010Q3

REPORT INFORMATION
  Report Type: 
  Country: None (occurrence: None)
  Receive Date: 20100831
  Receipt Date: 20100824
  Transmission Date: 20110219
  Serious: Yes (Other)
  Sender: FDA-Public Use
  Company Number: US-BAYER-201031532NA

PATIENT
  Age: 49 Year
  Sex: Female

DRUGS (6)
  1. AVELOX [Suspect]
     Indication: SINUSITIS
     Dosage: TOTAL DAILY DOSE: 400 MG  UNIT DOSE: 400 MG
     Route: 048
     Dates: start: 20100823
  2. ALLEGRA [Concomitant]
  3. PREDNISONE [Concomitant]
  4. SINGULAIR [Concomitant]
  5. ESTROGEN [Concomitant]
  6. VITAMINS [Concomitant]

REACTIONS (4)
  - HALLUCINATION, AUDITORY [None]
  - NIGHTMARE [None]
  - PALPITATIONS [None]
  - TREMOR [None]
